FAERS Safety Report 15397409 (Version 2)
Quarter: 2018Q4

REPORT INFORMATION
  Report Type: Spontaneous
  Country: US (occurrence: US)
  Receive Date: 20180918
  Receipt Date: 20181217
  Transmission Date: 20190204
  Serious: Yes (Hospitalization)
  Sender: FDA-Public Use
  Company Number: US-JNJFOC-20180916491

PATIENT
  Age: 34 Year
  Sex: Female

DRUGS (3)
  1. XARELTO [Suspect]
     Active Substance: RIVAROXABAN
     Indication: DEEP VEIN THROMBOSIS
     Route: 048
     Dates: start: 20170617, end: 20170729
  2. XARELTO [Suspect]
     Active Substance: RIVAROXABAN
     Indication: DEEP VEIN THROMBOSIS
     Dosage: VARYING DOSES 15-20 MG.
     Route: 048
     Dates: start: 20170517, end: 2017
  3. XARELTO [Suspect]
     Active Substance: RIVAROXABAN
     Indication: DEEP VEIN THROMBOSIS
     Dosage: VARYING DOSES 15-20 MG.
     Route: 048
     Dates: start: 2017, end: 20170829

REACTIONS (2)
  - Uterine haemorrhage [Unknown]
  - Multiple injuries [Recovered/Resolved]

NARRATIVE: CASE EVENT DATE: 201705
